FAERS Safety Report 4697079-9 (Version None)
Quarter: 2005Q2

REPORT INFORMATION
  Report Type: 
  Country: None (occurrence: None)
  Receive Date: 20050622
  Receipt Date: 20050311
  Transmission Date: 20051028
  Serious: Yes (Hospitalization)
  Sender: FDA-Public Use
  Company Number: US-MERCK-0503USA02576

PATIENT
  Age: 60 Year
  Sex: Male
  Weight: 77 kg

DRUGS (6)
  1. VIOXX [Suspect]
     Indication: POLYMYALGIA RHEUMATICA
     Route: 048
     Dates: start: 20000101, end: 20041001
  2. VIOXX [Suspect]
     Indication: ARTHRITIS
     Route: 048
     Dates: start: 20000101, end: 20041001
  3. VASOTEC [Concomitant]
     Route: 065
     Dates: start: 19850101
  4. PRILOSEC [Concomitant]
     Route: 065
  5. NEXIUM [Concomitant]
     Route: 065
  6. PREDNISONA SOD. FOS [Concomitant]
     Route: 065

REACTIONS (3)
  - CHEST PAIN [None]
  - CORONARY ARTERY DISEASE [None]
  - MYOCARDIAL INFARCTION [None]
